FAERS Safety Report 8113794 (Version 4)
Quarter: 2013Q1

REPORT INFORMATION
  Report Type: Report from Study
  Country: US (occurrence: US)
  Receive Date: 20110830
  Receipt Date: 20130121
  Transmission Date: 20140127
  Serious: Yes (Hospitalization, Other)
  Sender: FDA-Public Use
  Company Number: US-BRISTOL-MYERS SQUIBB COMPANY-15841505

PATIENT
  Age: 75 Year
  Sex: Female
  Weight: 73.6 kg

DRUGS (6)
  1. NIVOLUMAB [Suspect]
     Indication: METASTATIC MALIGNANT MELANOMA
     Dosage: 0.3MG/KG (CYL-2)ON 24JAN11-8MAR11 DOSE 4,DOSE INCREASED TO 1 MG/KG (CYL-2)ON 22MAR11-3MAY11 DOSE 4.
     Route: 042
     Dates: start: 20110124, end: 20110503
  2. YERVOY [Suspect]
     Indication: METASTATIC MALIGNANT MELANOMA
     Dosage: NO OF CYCLES:2,SECOND ON 31MAY11
     Route: 042
     Dates: start: 20110511, end: 20110531
  3. SYNTHROID [Concomitant]
  4. BENICAR [Concomitant]
  5. ATIVAN [Concomitant]
  6. TRAMADOL [Concomitant]

REACTIONS (7)
  - Sepsis [Unknown]
  - Pancytopenia [Recovered/Resolved]
  - Dehydration [Recovered/Resolved]
  - Hypotension [Recovered/Resolved]
  - Renal failure acute [Recovered/Resolved]
  - Transaminases increased [Recovered/Resolved]
  - Blood bilirubin increased [Recovered/Resolved]
